FAERS Safety Report 23072656 (Version 1)
Quarter: 2023Q4

REPORT INFORMATION
  Report Type: Spontaneous
  Country: US (occurrence: US)
  Receive Date: 20231017
  Receipt Date: 20231017
  Transmission Date: 20240109
  Serious: No
  Sender: FDA-Public Use
  Company Number: US-PADAGIS-2023PAD01434

PATIENT

DRUGS (1)
  1. ECONAZOLE NITRATE [Suspect]
     Active Substance: ECONAZOLE NITRATE
     Indication: Tinea infection
     Dosage: UNK, TWICE A DAY
     Route: 065

REACTIONS (4)
  - Dizziness [None]
  - Gait disturbance [None]
  - Vertigo [None]
  - Product dose omission issue [Unknown]

NARRATIVE: CASE EVENT DATE: 20231002
